FAERS Safety Report 12720798 (Version 1)
Quarter: 2016Q3

REPORT INFORMATION
  Report Type: Other
  Country: US (occurrence: US)
  Receive Date: 20160907
  Receipt Date: 20160907
  Transmission Date: 20161109
  Serious: No
  Sender: FDA-Public Use
  Company Number: US-COL_20942_2015

PATIENT
  Sex: Female

DRUGS (1)
  1. COLGATE TOTAL ADVANCE WHITENING [Suspect]
     Active Substance: SODIUM FLUORIDE\TRICLOSAN
     Indication: SENSITIVITY OF TEETH
     Dosage: NI/ NI/
     Route: 048

REACTIONS (2)
  - Sensitivity of teeth [Unknown]
  - Drug ineffective [Unknown]
